FAERS Safety Report 5284636-4 (Version None)
Quarter: 2007Q2

REPORT INFORMATION
  Report Type: 
  Country: None (occurrence: None)
  Receive Date: 20070403
  Receipt Date: 20070321
  Transmission Date: 20071010
  Serious: Yes (Hospitalization)
  Sender: FDA-Public Use
  Company Number: FR-ELI_LILLY_AND_COMPANY-FR200703004776

PATIENT
  Age: 67 Year
  Sex: Female

DRUGS (2)
  1. FORTEO [Suspect]
     Indication: OSTEOPOROSIS
     Dosage: 20 UG, DAILY (1/D)
     Route: 058
     Dates: start: 20060926, end: 20070316
  2. OROCAL D(3) [Concomitant]

REACTIONS (4)
  - BACK PAIN [None]
  - DYSURIA [None]
  - GROIN PAIN [None]
  - NEPHROLITHIASIS [None]
